FAERS Safety Report 21350185 (Version 2)
Quarter: 2022Q3

REPORT INFORMATION
  Report Type: Report from Study
  Country: AR (occurrence: AR)
  Receive Date: 20220919
  Receipt Date: 20220928
  Transmission Date: 20221027
  Serious: Yes (Hospitalization, Other)
  Sender: FDA-Public Use
  Company Number: AR-TAKEDA-2022TUS064965

PATIENT
  Age: 57 Year
  Sex: Female

DRUGS (1)
  1. VELAGLUCERASE ALFA [Suspect]
     Active Substance: VELAGLUCERASE ALFA
     Indication: Gaucher^s disease
     Dosage: 60 INTERNATIONAL UNIT/KILOGRAM
     Route: 042
     Dates: start: 19990617

REACTIONS (4)
  - Malaise [Unknown]
  - Gastric disorder [Recovering/Resolving]
  - Cholecystitis acute [Recovering/Resolving]
  - Cholecystitis infective [Unknown]

NARRATIVE: CASE EVENT DATE: 20220908
